FAERS Safety Report 4716733-3 (Version None)
Quarter: 2005Q3

REPORT INFORMATION
  Report Type: 
  Country: None (occurrence: None)
  Receive Date: 20050714
  Receipt Date: 20050708
  Transmission Date: 20060218
  Serious: Yes (Other)
  Sender: FDA-Public Use
  Company Number: 200512009BCC

PATIENT
  Age: 78 Year
  Sex: Female
  Weight: 58.9676 kg

DRUGS (7)
  1. REGIMEN BAYER 81 MG (ACETYLSALICYLIC ACID) [Suspect]
     Indication: CEREBROVASCULAR ACCIDENT PROPHYLAXIS
     Dosage: 81 MG QD ORAL
     Route: 048
     Dates: end: 20050416
  2. REGIMEN BAYER 81 MG (ACETYLSALICYLIC ACID) [Suspect]
     Indication: MYOCARDIAL INFARCTION
     Dosage: 81 MG QD ORAL
     Route: 048
     Dates: end: 20050416
  3. REGIMEN BAYER 81 MG (ACETYLSALICYLIC ACID) [Suspect]
     Indication: PROPHYLAXIS
     Dosage: 81 MG QD ORAL
     Route: 048
     Dates: end: 20050416
  4. VITAMINS [Concomitant]
  5. ESTRATEST [Concomitant]
  6. PROVERA [Concomitant]
  7. LEVOTHROID [Concomitant]

REACTIONS (4)
  - HYPOTENSION [None]
  - LOSS OF CONSCIOUSNESS [None]
  - ROAD TRAFFIC ACCIDENT [None]
  - TRANSIENT ISCHAEMIC ATTACK [None]
